FAERS Safety Report 5841044-2 (Version None)
Quarter: 2008Q3

REPORT INFORMATION
  Report Type: 
  Country: None (occurrence: None)
  Receive Date: 20080811
  Receipt Date: 20080731
  Transmission Date: 20090109
  Serious: Yes (Hospitalization)
  Sender: FDA-Public Use
  Company Number: JP-ABBOTT-07P-087-0364095-00

PATIENT
  Age: 47 Year
  Sex: Female

DRUGS (10)
  1. LEUPROLIDE ACETATE [Suspect]
     Indication: BREAST CANCER
     Route: 058
     Dates: start: 20060831, end: 20070913
  2. LEUPROLIDE ACETATE [Suspect]
     Indication: MENOPAUSE
     Dates: start: 20060831, end: 20060831
  3. LEUPROLIDE ACETATE [Suspect]
     Dates: start: 20061207, end: 20061207
  4. LEUPROLIDE ACETATE [Suspect]
     Dates: start: 20070308, end: 20070308
  5. LEUPROLIDE ACETATE [Suspect]
     Dates: start: 20070607, end: 20070607
  6. LEUPROLIDE ACETATE [Suspect]
     Dates: start: 20070913, end: 20070913
  7. LEUPROLIDE ACETATE [Suspect]
  8. TAMOXIFEN CITRATE [Concomitant]
     Indication: BREAST CANCER
     Route: 048
     Dates: start: 20060831
  9. TAMOXIFEN CITRATE [Concomitant]
     Indication: MENOPAUSE
  10. LEVOTHYROXINE SODIUM [Concomitant]
     Indication: THYROIDECTOMY
     Route: 048
     Dates: start: 20070910

REACTIONS (1)
  - RADIATION PNEUMONITIS [None]
